FAERS Safety Report 8455833-1 (Version None)
Quarter: 2012Q2

REPORT INFORMATION
  Report Type: 
  Country: None (occurrence: None)
  Receive Date: 20120621
  Receipt Date: 20120614
  Transmission Date: 20120825
  Serious: Yes (Hospitalization, Other)
  Sender: FDA-Public Use
  Company Number: JP-B.I. PHARMACEUTICALS,INC./RIDGEFIELD-2012-BP-13707NB

PATIENT
  Age: 78 Year
  Sex: Male

DRUGS (4)
  1. LANSOPRAZOLE [Concomitant]
     Route: 065
  2. HOKUNALIN:TAPE [Concomitant]
     Route: 062
  3. PRADAXA [Suspect]
     Indication: ATRIAL FIBRILLATION
     Dosage: 220 MG
     Route: 048
     Dates: start: 20120401
  4. PRADAXA [Suspect]
     Dosage: 220 MG
     Route: 048

REACTIONS (2)
  - CEREBRAL INFARCTION [None]
  - WRONG TECHNIQUE IN DRUG USAGE PROCESS [None]
